FAERS Safety Report 5713175-9 (Version None)
Quarter: 2008Q2

REPORT INFORMATION
  Report Type: 
  Country: None (occurrence: None)
  Receive Date: 20080422
  Receipt Date: 19850910
  Transmission Date: 20081010
  Serious: Yes (Death)
  Sender: FDA-Public Use
  Company Number: US-ROCHE-4746

PATIENT
  Sex: Male
  Weight: 78.2 kg

DRUGS (2)
  1. TICLOPIDINE HCL [Suspect]
     Indication: CEREBROVASCULAR ACCIDENT PROPHYLAXIS
     Route: 048
     Dates: start: 19840828
  2. INSULIN INSULATARD NPH NORDISK [Concomitant]
     Route: 058

REACTIONS (1)
  - DEATH [None]
